FAERS Safety Report 13582580 (Version 3)
Quarter: 2017Q2

REPORT INFORMATION
  Report Type: Spontaneous
  Country: US (occurrence: US)
  Receive Date: 20170525
  Receipt Date: 20170628
  Transmission Date: 20170830
  Serious: Yes (Other)
  Sender: FDA-Public Use
  Company Number: US-SA-2017SA094294

PATIENT
  Age: 61 Year
  Sex: Male

DRUGS (9)
  1. SUMATRIPTAN. [Concomitant]
     Active Substance: SUMATRIPTAN
  2. ALIROCUMAB PREFILLED PEN [Concomitant]
     Active Substance: ALIROCUMAB
     Indication: TYPE V HYPERLIPIDAEMIA
     Dates: start: 201703
  3. VIAGRA [Concomitant]
     Active Substance: SILDENAFIL CITRATE
  4. CIALIS [Concomitant]
     Active Substance: TADALAFIL
  5. DICYCLOMINE [Concomitant]
     Active Substance: DICYCLOMINE HYDROCHLORIDE
  6. KETOROLAC [Concomitant]
     Active Substance: KETOROLAC\KETOROLAC TROMETHAMINE
  7. BACLOFEN. [Concomitant]
     Active Substance: BACLOFEN
  8. PRALUENT [Suspect]
     Active Substance: ALIROCUMAB
     Indication: TYPE V HYPERLIPIDAEMIA
     Route: 058
     Dates: start: 201703
  9. TRAMADOL. [Concomitant]
     Active Substance: TRAMADOL

REACTIONS (12)
  - Chromaturia [Unknown]
  - Blood glucose decreased [Not Recovered/Not Resolved]
  - Liver disorder [Unknown]
  - Feeling abnormal [Not Recovered/Not Resolved]
  - Vision blurred [Unknown]
  - Hyperhidrosis [Unknown]
  - Back pain [Unknown]
  - Fatigue [Not Recovered/Not Resolved]
  - Feeling hot [Unknown]
  - Pruritus [Not Recovered/Not Resolved]
  - Somnolence [Unknown]
  - Visual impairment [Unknown]

NARRATIVE: CASE EVENT DATE: 2017
